FAERS Safety Report 4598590-1 (Version None)
Quarter: 2005Q1

REPORT INFORMATION
  Report Type: 
  Country: None (occurrence: None)
  Receive Date: 20050304
  Receipt Date: 20050222
  Transmission Date: 20050727
  Serious: Yes (Hospitalization)
  Sender: FDA-Public Use
  Company Number: FR-ROCHE-396214

PATIENT
  Age: 51 Year
  Sex: Male

DRUGS (7)
  1. RIVOTRIL [Suspect]
     Indication: PAIN
     Route: 048
     Dates: start: 20040301, end: 20040613
  2. NEO-MERCAZOLE TAB [Suspect]
     Indication: DRUG USE FOR UNKNOWN INDICATION
     Route: 048
     Dates: start: 20020501, end: 20040615
  3. SULFASALAZINE [Suspect]
     Indication: DRUG USE FOR UNKNOWN INDICATION
     Dosage: DOSE: 1 THEN 2 DO.
     Route: 048
     Dates: start: 20040528, end: 20040612
  4. CORTANCYL [Suspect]
     Indication: DRUG USE FOR UNKNOWN INDICATION
     Route: 048
     Dates: start: 20020901, end: 20040613
  5. VITAMIN D3 [Concomitant]
     Dates: start: 20040301
  6. CALCIUM GLUCONATE [Concomitant]
     Dates: start: 20040301
  7. OPHTIM [Concomitant]
     Dates: start: 20020601

REACTIONS (1)
  - TOXIC EPIDERMAL NECROLYSIS [None]
